FAERS Safety Report 9016170 (Version 2)
Quarter: 2013Q1

REPORT INFORMATION
  Report Type: Report from Study
  Country: US (occurrence: US)
  Receive Date: 20130116
  Receipt Date: 20130120
  Transmission Date: 20140127
  Serious: Yes (Other)
  Sender: FDA-Public Use
  Company Number: US-009507513-1301USA005967

PATIENT
  Age: 25 Year
  Sex: Female
  Weight: 78.46 kg

DRUGS (1)
  1. NOMEGESTROL ACETATE (+) ESTRADIOL [Suspect]
     Indication: CONTRACEPTION
     Dosage: 1 DF, QD
     Route: 048
     Dates: start: 20121119, end: 20121225

REACTIONS (1)
  - Ectopic pregnancy [Recovering/Resolving]
